FAERS Safety Report 22623302 (Version 3)
Quarter: 2024Q1

REPORT INFORMATION
  Report Type: Spontaneous
  Country: JP (occurrence: JP)
  Receive Date: 20230621
  Receipt Date: 20240223
  Transmission Date: 20240410
  Serious: Yes (Other)
  Sender: FDA-Public Use
  Company Number: JP-JNJFOC-20230634298

PATIENT
  Age: 53 Year
  Sex: Female

DRUGS (15)
  1. OPSUMIT [Suspect]
     Active Substance: MACITENTAN
     Indication: Pulmonary arterial hypertension
     Route: 048
     Dates: start: 20190514
  2. OPSUMIT [Suspect]
     Active Substance: MACITENTAN
     Indication: Pulmonary arterial hypertension
  3. OPSUMIT [Suspect]
     Active Substance: MACITENTAN
     Indication: Collagen disorder
  4. UPTRAVI [Suspect]
     Active Substance: SELEXIPAG
     Indication: Pulmonary arterial hypertension
     Dosage: (0.4 MG/24 HOURS)
     Route: 048
     Dates: start: 20190524, end: 20190606
  5. UPTRAVI [Suspect]
     Active Substance: SELEXIPAG
     Indication: Collagen disorder
     Dosage: (0.8 MG)
     Route: 048
     Dates: start: 20190607, end: 20190620
  6. UPTRAVI [Suspect]
     Active Substance: SELEXIPAG
     Indication: Pulmonary arterial hypertension
     Dosage: (1.2 MG/24 HRS)
     Route: 048
     Dates: start: 20190621, end: 20190704
  7. UPTRAVI [Suspect]
     Active Substance: SELEXIPAG
     Dosage: (1.6 MG/24 HRS)
     Route: 048
     Dates: start: 20190705, end: 20190718
  8. UPTRAVI [Suspect]
     Active Substance: SELEXIPAG
     Dosage: (2 MG/24 HRS)
     Route: 048
     Dates: start: 20190719, end: 20190801
  9. UPTRAVI [Suspect]
     Active Substance: SELEXIPAG
     Dosage: (2.4 MG/24 HRS)
     Route: 048
     Dates: start: 20190802, end: 20190815
  10. UPTRAVI [Suspect]
     Active Substance: SELEXIPAG
     Dosage: (2.8 MG/24 HRS)
     Route: 048
     Dates: start: 20190816, end: 20190829
  11. UPTRAVI [Suspect]
     Active Substance: SELEXIPAG
     Dosage: 3.2 MG/24 HOURS
     Route: 048
     Dates: start: 20190830
  12. TOLVAPTAN [Concomitant]
     Active Substance: TOLVAPTAN
  13. SPIRONOLACTONE [Concomitant]
     Active Substance: SPIRONOLACTONE
  14. SPIRONOLACTONE [Concomitant]
     Active Substance: SPIRONOLACTONE
  15. DOBUTAMINE [Concomitant]
     Active Substance: DOBUTAMINE HYDROCHLORIDE

REACTIONS (3)
  - Pulmonary arterial hypertension [Recovering/Resolving]
  - Haemorrhage [Recovered/Resolved]
  - Vasodilatation [Recovered/Resolved]

NARRATIVE: CASE EVENT DATE: 20200128
